FAERS Safety Report 6146735-4 (Version None)
Quarter: 2009Q2

REPORT INFORMATION
  Report Type: 
  Country: None (occurrence: None)
  Receive Date: 20090407
  Receipt Date: 20090402
  Transmission Date: 20091009
  Serious: Yes (Life-Threatening)
  Sender: FDA-Public Use
  Company Number: FR-JNJFOC-20090400741

PATIENT
  Age: 41 Year
  Sex: Male

DRUGS (2)
  1. DOXORUBICIN HCL [Suspect]
     Dosage: CYCLE 5
     Route: 042
  2. DOXORUBICIN HCL [Suspect]
     Indication: KAPOSI'S SARCOMA
     Dosage: CYCLES 1-4
     Route: 042

REACTIONS (2)
  - MYOCARDITIS [None]
  - PERICARDITIS [None]
